FAERS Safety Report 19881068 (Version 2)
Quarter: 2021Q3

REPORT INFORMATION
  Report Type: Report from Study
  Country: US (occurrence: US)
  Receive Date: 20210924
  Receipt Date: 20210928
  Transmission Date: 20211014
  Serious: Yes (Death, Other)
  Sender: FDA-Public Use
  Company Number: US-TAIHO ONCOLOGY  INC-EU-2021-03030

PATIENT
  Age: 74 Year
  Sex: Female

DRUGS (1)
  1. LONSURF [Suspect]
     Active Substance: TIPIRACIL HYDROCHLORIDE\TRIFLURIDINE
     Indication: PRODUCT USED FOR UNKNOWN INDICATION
     Dosage: DOSE, FREQUENCY, CYCLE UNKNOWN.
     Route: 048

REACTIONS (3)
  - Death [Fatal]
  - Terminal state [Unknown]
  - Unresponsive to stimuli [Unknown]
